FAERS Safety Report 6939848-8 (Version None)
Quarter: 2010Q3

REPORT INFORMATION
  Report Type: 
  Country: None (occurrence: None)
  Receive Date: 20100825
  Receipt Date: 20100811
  Transmission Date: 20110219
  Serious: Yes (Hospitalization)
  Sender: FDA-Public Use
  Company Number: US-ELI_LILLY_AND_COMPANY-US201008005340

PATIENT
  Sex: Female

DRUGS (10)
  1. FORTEO [Suspect]
     Indication: OSTEOPOROSIS
     Dosage: 20 UG, DAILY (1/D)
  2. DILAUDID [Concomitant]
     Dosage: 8 MG, 2/D
  3. DILAUDID [Concomitant]
     Dosage: 2 MG, 2/D
  4. SEROQUEL [Concomitant]
     Dosage: 100 MG, EACH MORNING
  5. SEROQUEL [Concomitant]
     Dosage: 200 MG, EACH EVENING
  6. CYMBALTA [Concomitant]
     Dosage: 60 MG, DAILY (1/D)
  7. LEVOTHYROXINE [Concomitant]
     Dosage: 0.05 MG, DAILY (1/D)
  8. ENABLEX                            /01760402/ [Concomitant]
     Dosage: 15 MG, DAILY (1/D)
  9. WARFARIN [Concomitant]
     Dosage: 4 MG, DAILY (1/D)
  10. LORAZEPAM [Concomitant]
     Dosage: 1 MG, AS NEEDED

REACTIONS (4)
  - ARTHRALGIA [None]
  - ILL-DEFINED DISORDER [None]
  - OSTEONECROSIS [None]
  - PAIN [None]
